FAERS Safety Report 6304181-4 (Version None)
Quarter: 2009Q3

REPORT INFORMATION
  Report Type: 
  Country: None (occurrence: None)
  Receive Date: 20090811
  Receipt Date: 20090807
  Transmission Date: 20100115
  Serious: Yes (Other)
  Sender: FDA-Public Use
  Company Number: DE-BIOGENIDEC-2009BI024689

PATIENT
  Age: 56 Year
  Sex: Male
  Weight: 72 kg

DRUGS (2)
  1. AVONEX [Suspect]
     Indication: RELAPSING-REMITTING MULTIPLE SCLEROSIS
     Route: 030
     Dates: start: 20090806, end: 20090807
  2. TABLETS FOR TREATING HIGH BLOOD PRESSURE (NOS) [Concomitant]
     Indication: HYPERTENSION
     Route: 048

REACTIONS (5)
  - ANGINA PECTORIS [None]
  - ARRHYTHMIA [None]
  - DIPLOPIA [None]
  - HYPERSENSITIVITY [None]
  - HYPERTENSION [None]
